FAERS Safety Report 9032430 (Version 2)
Quarter: 2013Q2

REPORT INFORMATION
  Report Type: Spontaneous
  Country: US (occurrence: None)
  Receive Date: 20120426
  Receipt Date: 20120703
  Transmission Date: 20140414
  Serious: Yes (Other)
  Sender: FDA-Public Use
  Company Number: PHEH2011US010976

PATIENT
  Age: 32 Year
  Sex: Male
  Weight: 60.3 kg

DRUGS (1)
  1. GILENYA [Suspect]
     Indication: MULTIPLE SCLEROSIS
     Dosage: 0.5 MG,  DAILY,  ORAL
     Route: 048
     Dates: start: 201012, end: 201202

REACTIONS (7)
  - Central nervous system lesion [None]
  - Vomiting [None]
  - Aphagia [None]
  - Drug ineffective [None]
  - Hypoaesthesia [None]
  - Musculoskeletal stiffness [None]
  - Paraesthesia [None]
